FAERS Safety Report 9787546 (Version 1)
Quarter: 2013Q4

REPORT INFORMATION
  Report Type: Spontaneous
  Country: US (occurrence: None)
  Receive Date: 20131224
  Receipt Date: 20131224
  Transmission Date: 20140711
  Serious: Yes (Hospitalization)
  Sender: FDA-Public Use
  Company Number: FK201305487

PATIENT
  Age: 3 Year
  Sex: Female

DRUGS (4)
  1. CARBOPLATIN (MANUFACTURER UNKNOWN) (CARBOPLATIN) (CARBOPLATIN) [Suspect]
     Indication: RETINOBLASTOMA
  2. ETOPOSIDE [Suspect]
     Indication: RETINOBLASTOMA
  3. VINCRISTINE [Suspect]
     Indication: RETINOBLASTOMA
  4. CYCLOSPORINE [Suspect]
     Indication: RETINOBLASTOMA

REACTIONS (2)
  - Disorder of orbit [None]
  - Ocular vascular disorder [None]
